FAERS Safety Report 8166604-8 (Version None)
Quarter: 2012Q1

REPORT INFORMATION
  Report Type: 
  Country: None (occurrence: None)
  Receive Date: 20120227
  Receipt Date: 20110914
  Transmission Date: 20120608
  Serious: No
  Sender: FDA-Public Use
  Company Number: US-MYLANLABS-2011S1019134

PATIENT
  Sex: Female

DRUGS (2)
  1. AMNESTEEM [Suspect]
     Indication: ACNE
     Route: 048
     Dates: start: 20110701, end: 20110907
  2. AMNESTEEM [Suspect]
     Route: 048
     Dates: start: 20110801, end: 20110907

REACTIONS (3)
  - DRY SKIN [None]
  - DRY EYE [None]
  - LIP DRY [None]
